FAERS Safety Report 12467971 (Version 1)
Quarter: 2016Q2

REPORT INFORMATION
  Report Type: Spontaneous
  Country: FR (occurrence: FR)
  Receive Date: 20160615
  Receipt Date: 20160615
  Transmission Date: 20160815
  Serious: Yes (Hospitalization, Other)
  Sender: FDA-Public Use
  Company Number: FR-PFIZER INC-2016292577

PATIENT
  Age: 83 Year
  Sex: Male

DRUGS (10)
  1. ALFUZOSIN HCL [Concomitant]
     Active Substance: ALFUZOSIN HYDROCHLORIDE
  2. LASILIX /00032601/ [Suspect]
     Active Substance: FUROSEMIDE
     Indication: CARDIAC FAILURE
     Dosage: UNK
     Route: 048
     Dates: end: 20160502
  3. FLUVASTATIN SODIUM. [Concomitant]
     Active Substance: FLUVASTATIN SODIUM
  4. DIFFU-K [Concomitant]
     Active Substance: POTASSIUM CHLORIDE
  5. KARDEGIC [Concomitant]
     Active Substance: ASPIRIN LYSINE
  6. COUMADINE [Concomitant]
     Active Substance: WARFARIN SODIUM
  7. INSPRA [Suspect]
     Active Substance: EPLERENONE
     Indication: CARDIAC FAILURE
     Dosage: 1 DF, DAILY ON MIDDAY
     Route: 048
     Dates: end: 20160502
  8. ENTRESTO [Suspect]
     Active Substance: SACUBITRIL\VALSARTAN
     Indication: CARDIAC FAILURE
     Dosage: 1 DF, 2X/DAY ONE TABLET IN THE MORNING AND ONE IN THE EVENING
     Route: 048
     Dates: start: 20160401, end: 20160502
  9. BISOPROLOL FUMARATE. [Concomitant]
     Active Substance: BISOPROLOL FUMARATE
  10. INORIAL [Concomitant]
     Active Substance: BILASTINE

REACTIONS (3)
  - Diarrhoea [Unknown]
  - Hypotension [Unknown]
  - Acute prerenal failure [Recovering/Resolving]

NARRATIVE: CASE EVENT DATE: 2016
